FAERS Safety Report 10721225 (Version 2)
Quarter: 2015Q1

REPORT INFORMATION
  Report Type: Spontaneous
  Country: CN (occurrence: CN)
  Receive Date: 20150119
  Receipt Date: 20150311
  Transmission Date: 20150721
  Serious: Yes (Hospitalization)
  Sender: FDA-Public Use
  Company Number: CN-BAYER-2015-006765

PATIENT
  Age: 48 Year
  Sex: Male

DRUGS (3)
  1. NEXAVAR [Suspect]
     Active Substance: SORAFENIB
     Indication: HEPATOCELLULAR CARCINOMA
     Dosage: 400 MG, UNK
     Route: 048
     Dates: start: 2013, end: 20150112
  2. ENTECAVIR. [Concomitant]
     Active Substance: ENTECAVIR
     Route: 048
  3. ADEFOVIR [Concomitant]
     Active Substance: ADEFOVIR
     Route: 048

REACTIONS (1)
  - Renal artery stenosis [None]

NARRATIVE: CASE EVENT DATE: 20150109
